FAERS Safety Report 21936217 (Version 1)
Quarter: 2023Q1

REPORT INFORMATION
  Report Type: Spontaneous
  Country: US (occurrence: None)
  Receive Date: 20230131
  Receipt Date: 20230131
  Transmission Date: 20230418
  Serious: No
  Sender: FDA-Public Use
  Company Number: None

PATIENT
  Sex: Female

DRUGS (1)
  1. REMICADE [Suspect]
     Active Substance: INFLIXIMAB
     Indication: Psoriatic arthropathy
     Dosage: 5MG/KG EVERY 4 WEEKS  INFUSION?
     Route: 050
     Dates: start: 20220204

REACTIONS (5)
  - Depression [None]
  - Anxiety [None]
  - Pain [None]
  - Infusion related reaction [None]
  - Drug ineffective [None]
